FAERS Safety Report 9100383 (Version 1)
Quarter: 2013Q1

REPORT INFORMATION
  Report Type: Spontaneous
  Country: IT (occurrence: IT)
  Receive Date: 20130214
  Receipt Date: 20130214
  Transmission Date: 20140127
  Serious: Yes (Other)
  Sender: FDA-Public Use
  Company Number: IT-SANOFI-AVENTIS-2013SA010576

PATIENT
  Sex: Male

DRUGS (2)
  1. JEVTANA [Suspect]
     Indication: PROSTATE CANCER
     Route: 065
  2. JEVTANA [Suspect]
     Indication: PROSTATE CANCER
     Route: 065

REACTIONS (2)
  - Papilloedema [Recovered/Resolved]
  - Visual acuity reduced [Recovered/Resolved]
